FAERS Safety Report 11637539 (Version 4)
Quarter: 2015Q4

REPORT INFORMATION
  Report Type: Spontaneous
  Country: IT (occurrence: IT)
  Receive Date: 20151016
  Receipt Date: 20151130
  Transmission Date: 20160304
  Serious: Yes (Death, Other)
  Sender: FDA-Public Use
  Company Number: IT-GILEAD-2015-0176838

PATIENT
  Age: 61 Year
  Sex: Male
  Weight: 63 kg

DRUGS (8)
  1. REBETOL [Suspect]
     Active Substance: RIBAVIRIN
     Dosage: 200 MG, TID
     Route: 048
     Dates: start: 20150908
  2. INDERAL [Concomitant]
     Active Substance: PROPRANOLOL HYDROCHLORIDE
     Indication: PORTAL HYPERTENSION
     Dosage: 30 MG, UNK
     Route: 048
     Dates: start: 20150626, end: 20150917
  3. MEPRAL                             /00661201/ [Concomitant]
     Indication: PRODUCT USED FOR UNKNOWN INDICATION
     Dosage: 20 MG, UNK
     Route: 048
     Dates: start: 20150626, end: 20150917
  4. REBETOL [Suspect]
     Active Substance: RIBAVIRIN
     Indication: ACUTE HEPATITIS C
     Dosage: 1 G, QD
     Route: 048
     Dates: start: 20150626, end: 20150907
  5. HELIXATE [Concomitant]
     Active Substance: ANTIHEMOPHILIC FACTOR, HUMAN RECOMBINANT
     Indication: PRODUCT USED FOR UNKNOWN INDICATION
     Dosage: UNK, PRN
     Route: 065
     Dates: start: 20150626, end: 20150907
  6. KANRENOL [Concomitant]
     Active Substance: CANRENOATE POTASSIUM
     Indication: HYPERALDOSTERONISM
     Dosage: 100 MG, UNK
     Route: 048
     Dates: start: 20150626, end: 20150917
  7. SOVALDI [Suspect]
     Active Substance: SOFOSBUVIR
     Indication: HEPATITIS C ANTIBODY POSITIVE
     Dosage: 400 MG, QD
     Route: 048
     Dates: start: 20150626, end: 20150917
  8. OLYSIO [Suspect]
     Active Substance: SIMEPREVIR
     Indication: HEPATITIS C ANTIBODY POSITIVE
     Dosage: 150 MG, QD
     Route: 048
     Dates: start: 20150626, end: 20150917

REACTIONS (1)
  - Death [Fatal]

NARRATIVE: CASE EVENT DATE: 20150926
